FAERS Safety Report 16826830 (Version 2)
Quarter: 2019Q3

REPORT INFORMATION
  Report Type: Spontaneous
  Country: US (occurrence: US)
  Receive Date: 20190919
  Receipt Date: 20190927
  Transmission Date: 20191005
  Serious: Yes (Other)
  Sender: FDA-Public Use
  Company Number: US-GW PHARMA-201909USGW3281

PATIENT

DRUGS (5)
  1. DEPAKOTE [Suspect]
     Active Substance: DIVALPROEX SODIUM
     Indication: SEIZURE
     Dosage: 2500 MILLIGRAM, QD (ON DEPAKOTE FOR MANY YEARS AT THE SAME DOSE)
     Route: 065
  2. TOPAMAX [Concomitant]
     Active Substance: TOPIRAMATE
     Indication: SEIZURE
     Dosage: UNK (ON TOPAMAX FOR YEARS)
     Route: 065
  3. ONFI [Concomitant]
     Active Substance: CLOBAZAM
     Indication: SEIZURE
     Dosage: UNK (ON ONFI FOR OVER 1 YEAR)
     Route: 065
  4. EPIDIOLEX [Suspect]
     Active Substance: CANNABIDIOL
     Indication: SEIZURE
     Dosage: 5.345 MG/KG/DAY, 200 MILLIGRAM, BID
     Route: 048
     Dates: start: 201907
  5. KEPPRA [Concomitant]
     Active Substance: LEVETIRACETAM
     Indication: SEIZURE
     Dosage: UNK (ON KEPPRAFOR A COUPLE OF YEARS)
     Route: 065

REACTIONS (3)
  - Pancreatitis necrotising [Recovered/Resolved]
  - Cholelithiasis [Unknown]
  - Hepatic steatosis [Unknown]

NARRATIVE: CASE EVENT DATE: 2019
